FAERS Safety Report 6084991-1 (Version None)
Quarter: 2009Q1

REPORT INFORMATION
  Report Type: 
  Country: None (occurrence: None)
  Receive Date: 20090220
  Receipt Date: 20090217
  Transmission Date: 20090719
  Serious: Yes (Life-Threatening, Hospitalization)
  Sender: FDA-Public Use
  Company Number: US-JNJFOC-20090204544

PATIENT
  Sex: Male
  Weight: 101.15 kg

DRUGS (2)
  1. DURAGESIC-100 [Suspect]
     Indication: BACK DISORDER
     Route: 062
  2. LOPRESSOR [Concomitant]
     Indication: HYPERTENSION
     Route: 048

REACTIONS (5)
  - AMNESIA [None]
  - BALANCE DISORDER [None]
  - COMA [None]
  - DEVICE LEAKAGE [None]
  - INCORRECT DRUG ADMINISTRATION RATE [None]
